FAERS Safety Report 5026236-7 (Version None)
Quarter: 2006Q2

REPORT INFORMATION
  Report Type: 
  Country: None (occurrence: None)
  Receive Date: 20060608
  Receipt Date: 20060526
  Transmission Date: 20061013
  Serious: Yes (Death, Hospitalization)
  Sender: FDA-Public Use
  Company Number: 2006055019

PATIENT
  Age: 70 Year
  Sex: Male

DRUGS (9)
  1. SUTENT [Suspect]
     Indication: GASTROINTESTINAL STROMAL TUMOUR
     Dosage: 37.5 MG (37.5 MG, CYCLIC), ORAL
     Route: 048
     Dates: start: 20050713, end: 20060426
  2. TRAMADOL HCL [Concomitant]
  3. DICLOFENAC SODIUM [Concomitant]
  4. TEMAZEPAM [Concomitant]
  5. BENDROFLUMETHIAZIDE (BENDROFLUMETHIAZIDE) [Concomitant]
  6. METFORMIN [Concomitant]
  7. AMLODIPINE [Concomitant]
  8. CYCLIZINE (CYCLIZINE) [Concomitant]
  9. ESOMEPRAZOLE (ESOMEPRAZOLE) [Concomitant]

REACTIONS (17)
  - BLOOD ALBUMIN DECREASED [None]
  - BLOOD ALKALINE PHOSPHATASE INCREASED [None]
  - BLOOD CREATINE INCREASED [None]
  - BLOOD PHOSPHORUS DECREASED [None]
  - BLOOD UREA INCREASED [None]
  - C-REACTIVE PROTEIN INCREASED [None]
  - COLLAPSE OF LUNG [None]
  - DIARRHOEA [None]
  - DISEASE PROGRESSION [None]
  - GASTROINTESTINAL STROMAL TUMOUR [None]
  - HAEMOGLOBIN DECREASED [None]
  - NAUSEA [None]
  - PLATELET COUNT INCREASED [None]
  - PLEURAL EFFUSION [None]
  - POST PROCEDURAL COMPLICATION [None]
  - PROTEIN TOTAL DECREASED [None]
  - VOMITING [None]
